FAERS Safety Report 18852161 (Version 1)
Quarter: 2021Q1

REPORT INFORMATION
  Report Type: Spontaneous
  Country: US (occurrence: US)
  Receive Date: 20210205
  Receipt Date: 20210205
  Transmission Date: 20210420
  Serious: Yes (Hospitalization)
  Sender: FDA-Public Use
  Company Number: None

PATIENT
  Age: 68 Year
  Sex: Female
  Weight: 86.4 kg

DRUGS (2)
  1. BAMLINIVIMAB [Concomitant]
     Dates: start: 20210204, end: 20210204
  2. BAMLINIVIMAB [Suspect]
     Active Substance: BAMLANIVIMAB
     Indication: COVID-19
     Dates: start: 20210204, end: 20210204

REACTIONS (9)
  - Feeling abnormal [None]
  - Hyperhidrosis [None]
  - Feeling hot [None]
  - Blood pressure decreased [None]
  - Chest discomfort [None]
  - Loss of consciousness [None]
  - Acute coronary syndrome [None]
  - Palpitations [None]
  - Syncope [None]

NARRATIVE: CASE EVENT DATE: 20210204
